FAERS Safety Report 14836539 (Version 1)
Quarter: 2018Q2

REPORT INFORMATION
  Report Type: Other
  Country: IT (occurrence: IT)
  Receive Date: 20180502
  Receipt Date: 20180502
  Transmission Date: 20180711
  Serious: Yes (Hospitalization, Other)
  Sender: FDA-Public Use
  Company Number: IT-APOTEX-2018AP011716

PATIENT
  Age: 50 Year
  Sex: Female
  Weight: 109 kg

DRUGS (4)
  1. PRAVASTATIN. [Suspect]
     Active Substance: PRAVASTATIN
     Indication: PRODUCT USED FOR UNKNOWN INDICATION
     Dosage: UNK
     Route: 065
  2. PERTUSSIS VACCINE [Suspect]
     Active Substance: PERTUSSIS VACCINE
     Indication: IMMUNISATION
     Dosage: UNK
     Route: 065
  3. POLIOMYELITIS VACCINE [Suspect]
     Active Substance: POLIOMYELITIS VACCINE
     Indication: IMMUNISATION
     Dosage: UNK
     Route: 065
  4. DIPHTHERIA AND TETANUS TOXOIDS [Suspect]
     Active Substance: DIPHTHERIA AND TETANUS TOXOIDS
     Indication: IMMUNISATION
     Dosage: UNK
     Route: 065

REACTIONS (3)
  - Drug interaction [Unknown]
  - Rhabdomyolysis [Unknown]
  - Blood creatine phosphokinase increased [Unknown]
